FAERS Safety Report 8964420 (Version 1)
Quarter: 2012Q4

REPORT INFORMATION
  Report Type: 
  Country: US (occurrence: US)
  Receive Date: 20121214
  Receipt Date: 20121214
  Transmission Date: 20130627
  Serious: No
  Sender: FDA-Public Use
  Company Number: US-GLAXOSMITHKLINE-A0986557A

PATIENT
  Age: 75 Year
  Sex: Male
  Weight: 104.5 kg

DRUGS (2)
  1. AVODART [Suspect]
     Indication: PROSTATOMEGALY
     Dosage: 1CAP Per day
     Route: 048
     Dates: start: 20110909
  2. NARCOTICS [Concomitant]

REACTIONS (1)
  - Medication residue [Recovered/Resolved]
